FAERS Safety Report 6485388-2 (Version None)
Quarter: 2009Q4

REPORT INFORMATION
  Report Type: 
  Country: None (occurrence: None)
  Receive Date: 20091204
  Receipt Date: 20091118
  Transmission Date: 20100525
  Serious: Yes (Hospitalization)
  Sender: FDA-Public Use
  Company Number: DSA_41932_2009

PATIENT
  Sex: Female

DRUGS (3)
  1. BUPROPION HYDROCHLORIDE [Suspect]
     Indication: ANXIETY
     Dosage: (1 DF QD ORAL), ('MASSIVE INGESTION')
     Route: 048
     Dates: end: 20091025
  2. BUPROPION HYDROCHLORIDE [Suspect]
     Indication: DEPRESSION
     Dosage: (1 DF QD ORAL), ('MASSIVE INGESTION')
     Route: 048
     Dates: end: 20091025
  3. OPIATE UNKNOWN [Suspect]
     Indication: DRUG USE FOR UNKNOWN INDICATION
     Dosage: (DF UNKNOWN)

REACTIONS (4)
  - CONVULSION [None]
  - INCORRECT DOSE ADMINISTERED [None]
  - NEUROLOGICAL SYMPTOM [None]
  - SUICIDE ATTEMPT [None]
